FAERS Safety Report 9871323 (Version 3)
Quarter: 2016Q3

REPORT INFORMATION
  Report Type: Spontaneous
  Country: JP (occurrence: JP)
  Receive Date: 20140205
  Receipt Date: 20160822
  Transmission Date: 20161109
  Serious: Yes (Hospitalization, Other)
  Sender: FDA-Public Use
  Company Number: JP-ASTRAZENECA-2014SE07663

PATIENT
  Age: 26 Year
  Sex: Female

DRUGS (7)
  1. ABILIFY [Suspect]
     Active Substance: ARIPIPRAZOLE
     Indication: SCHIZOPHRENIA
     Dosage: 60 MG
     Route: 048
  2. LORAZEPAM. [Suspect]
     Active Substance: LORAZEPAM
     Indication: PRODUCT USED FOR UNKNOWN INDICATION
     Dosage: 0.5 MG
     Route: 048
  3. SEROQUEL [Suspect]
     Active Substance: QUETIAPINE FUMARATE
     Indication: PRODUCT USED FOR UNKNOWN INDICATION
     Dosage: 1550.0MG ONCE/SINGLE ADMINISTRATION
     Route: 048
  4. METLIGINE [Suspect]
     Active Substance: MIDODRINE HYDROCHLORIDE
     Indication: PRODUCT USED FOR UNKNOWN INDICATION
     Dosage: 20.0MG ONCE/SINGLE ADMINISTRATION
     Route: 048
  5. SODIUM VALPROATE [Suspect]
     Active Substance: VALPROATE SODIUM
     Indication: PRODUCT USED FOR UNKNOWN INDICATION
     Dosage: 2000.0MG ONCE/SINGLE ADMINISTRATION
     Route: 048
  6. CONTRACEPTIVES [Concomitant]
     Active Substance: UNSPECIFIED INGREDIENT
     Route: 065
  7. LEVOMEPROMAZINE MALEATE [Suspect]
     Active Substance: LEVOMEPROMAZINE MALEATE
     Indication: PRODUCT USED FOR UNKNOWN INDICATION
     Dosage: 20.0MG ONCE/SINGLE ADMINISTRATION
     Route: 048

REACTIONS (3)
  - Rhabdomyolysis [Recovering/Resolving]
  - Altered state of consciousness [Unknown]
  - Overdose [Unknown]
